FAERS Safety Report 5411937-9 (Version None)
Quarter: 2007Q3

REPORT INFORMATION
  Report Type: 
  Country: None (occurrence: None)
  Receive Date: 20070809
  Receipt Date: 20070809
  Transmission Date: 20080115
  Serious: No
  Sender: FDA-Public Use
  Company Number: None

PATIENT
  Sex: Female

DRUGS (2)
  1. TOFRANIL [Suspect]
     Indication: DEPRESSION
     Dosage: 10MG 35-45 MG HS PO 20MG 35-45 MG HS PO ON/OFF
     Route: 048
     Dates: start: 19940101
  2. TOFRANIL [Suspect]
     Indication: MIGRAINE
     Dosage: 10MG 35-45 MG HS PO 20MG 35-45 MG HS PO ON/OFF
     Route: 048
     Dates: start: 19940101

REACTIONS (5)
  - AGITATION [None]
  - DEPRESSION [None]
  - DIZZINESS [None]
  - MIGRAINE [None]
  - PHARMACEUTICAL PRODUCT COMPLAINT [None]
